FAERS Safety Report 8274383 (Version 3)
Quarter: 2014Q3

REPORT INFORMATION
  Report Type: Spontaneous
  Country: GB (occurrence: GB)
  Receive Date: 20111205
  Receipt Date: 20140728
  Transmission Date: 20150326
  Serious: Yes (Other)
  Sender: FDA-Public Use
  Company Number: GB-RANBAXY-2011R1-50789

PATIENT
  Age: 38 Year
  Sex: Female
  Weight: 42 kg

DRUGS (13)
  1. TOPAMAX [Suspect]
     Active Substance: TOPIRAMATE
     Indication: EPILEPSY
     Dosage: UNK
     Route: 048
     Dates: start: 20070703
  2. TOPAMAX [Suspect]
     Active Substance: TOPIRAMATE
     Indication: EPILEPSY
     Dosage: 100 MG, BID
     Route: 048
     Dates: start: 20101025
  3. FOLIC ACID. [Concomitant]
     Active Substance: FOLIC ACID
     Indication: PRODUCT USED FOR UNKNOWN INDICATION
     Dosage: 5 MG, QD
     Route: 065
     Dates: start: 20091130
  4. KEPPRA [Concomitant]
     Active Substance: LEVETIRACETAM
     Indication: PRODUCT USED FOR UNKNOWN INDICATION
     Dosage: 250 MG, QD
     Route: 065
     Dates: start: 20110727
  5. TOPAMAX [Suspect]
     Active Substance: TOPIRAMATE
     Indication: EPILEPSY
     Dosage: 50 MG, BID
     Route: 048
     Dates: start: 20100915, end: 20100915
  6. RIVOTRIL [Concomitant]
     Active Substance: CLONAZEPAM
     Indication: PRODUCT USED FOR UNKNOWN INDICATION
     Dosage: 2000 UG, QD
     Route: 065
     Dates: start: 20100915
  7. RIVOTRIL [Concomitant]
     Active Substance: CLONAZEPAM
     Dosage: 1000 UG, BID
     Route: 065
     Dates: start: 20091130
  8. FLUOXETINE [Suspect]
     Active Substance: FLUOXETINE\FLUOXETINE HYDROCHLORIDE
     Indication: PRODUCT USED FOR UNKNOWN INDICATION
     Dosage: 20 MG, QD
     Route: 065
     Dates: start: 20101018, end: 20110831
  9. KEPPRA [Concomitant]
     Active Substance: LEVETIRACETAM
     Dosage: 250 MG, BID
     Route: 065
     Dates: start: 20110831
  10. TOPAMAX [Suspect]
     Active Substance: TOPIRAMATE
     Dosage: 50 MG, QD
     Route: 048
     Dates: start: 20110830, end: 20110830
  11. TOPAMAX [Suspect]
     Active Substance: TOPIRAMATE
     Dosage: 150MG, 1 DAYS (50MG TWICE A DAY AND 25MG TWICE A DAY)
     Route: 048
     Dates: start: 20091130, end: 20100623
  12. TOPAMAX [Suspect]
     Active Substance: TOPIRAMATE
     Dosage: 150MG, 1 DAYS (50MG TWICE A DAY AND 25MG TWICE A DAY)
     Route: 048
     Dates: start: 20091130, end: 20100623
  13. CLONAZEPAM. [Concomitant]
     Active Substance: CLONAZEPAM
     Indication: PRODUCT USED FOR UNKNOWN INDICATION
     Dosage: UNK
     Route: 065

REACTIONS (17)
  - Depression [Unknown]
  - Weight decreased [Unknown]
  - Breath odour [Unknown]
  - Paraesthesia [Unknown]
  - Palpitations [Unknown]
  - Somnolence [Unknown]
  - Diarrhoea [Unknown]
  - Abdominal pain upper [Unknown]
  - Emotional poverty [Unknown]
  - Irritable bowel syndrome [Unknown]
  - Sensitivity of teeth [Unknown]
  - Feeling abnormal [Recovered/Resolved]
  - Feeling abnormal [Unknown]
  - Mood swings [Unknown]
  - Decreased appetite [Unknown]
  - Tooth loss [Unknown]
  - Dysgeusia [Unknown]

NARRATIVE: CASE EVENT DATE: 20101018
